FAERS Safety Report 7363185-3 (Version None)
Quarter: 2011Q1

REPORT INFORMATION
  Report Type: 
  Country: None (occurrence: None)
  Receive Date: 20110321
  Receipt Date: 20100928
  Transmission Date: 20110831
  Serious: Yes (Other)
  Sender: FDA-Public Use
  Company Number: US-BAYER-201034899NA

PATIENT
  Sex: Female
  Weight: 54.422 kg

DRUGS (3)
  1. YASMIN [Suspect]
     Indication: ACNE
     Dosage: UNK
     Dates: start: 20040101, end: 20080101
  2. YAZ [Suspect]
     Indication: ACNE
  3. OCELLA [Suspect]
     Indication: ACNE

REACTIONS (3)
  - THROMBOSIS [None]
  - INJURY [None]
  - INTRACRANIAL VENOUS SINUS THROMBOSIS [None]
